FAERS Safety Report 12670438 (Version 1)
Quarter: 2016Q3

REPORT INFORMATION
  Report Type: Spontaneous
  Country: BR (occurrence: BR)
  Receive Date: 20160822
  Receipt Date: 20160822
  Transmission Date: 20161109
  Serious: Yes (Hospitalization, Other)
  Sender: FDA-Public Use
  Company Number: BR-GLAXOSMITHKLINE-BR2016GSK116674

PATIENT
  Sex: Female
  Weight: 70 kg

DRUGS (2)
  1. DICLOFENAC POTASSIUM. [Suspect]
     Active Substance: DICLOFENAC POTASSIUM
     Indication: PRODUCT USED FOR UNKNOWN INDICATION
     Dosage: UNK
     Dates: start: 20160725
  2. CLAVULIN [Suspect]
     Active Substance: AMOXICILLIN\CLAVULANIC ACID
     Indication: EAR INFECTION
     Dosage: 1 DF, QOD
     Route: 048
     Dates: start: 20160725, end: 20160728

REACTIONS (2)
  - Drug resistance [Unknown]
  - Mastoiditis [Recovered/Resolved]
